FAERS Safety Report 17011628 (Version 1)
Quarter: 2019Q4

REPORT INFORMATION
  Report Type: Spontaneous
  Country: US (occurrence: US)
  Receive Date: 20191108
  Receipt Date: 20191108
  Transmission Date: 20200122
  Serious: No
  Sender: FDA-Public Use
  Company Number: US-EPIC PHARMA LLC-2018EPC00446

PATIENT
  Age: 46 Year
  Sex: Female
  Weight: 80.73 kg

DRUGS (5)
  1. OXYCONTIN [Concomitant]
     Active Substance: OXYCODONE HYDROCHLORIDE
     Dosage: 5 MG, 2X/DAY
  2. LISINOPRIL. [Concomitant]
     Active Substance: LISINOPRIL
  3. TAMOXIFEN [Concomitant]
     Active Substance: TAMOXIFEN
  4. OXYCODONE HYDROCHLORIDE. [Suspect]
     Active Substance: OXYCODONE HYDROCHLORIDE
     Dosage: UNK
     Dates: end: 2018
  5. OXYCODONE HYDROCHLORIDE. [Suspect]
     Active Substance: OXYCODONE HYDROCHLORIDE
     Indication: PAIN
     Dosage: 10 TO 20 MG, UP TO 4X/DAY
     Route: 048
     Dates: start: 20180912, end: 20181015

REACTIONS (3)
  - Nausea [Recovering/Resolving]
  - Malaise [Recovered/Resolved]
  - Vomiting [Recovering/Resolving]

NARRATIVE: CASE EVENT DATE: 20181013
